FAERS Safety Report 15884285 (Version 3)
Quarter: 2019Q1

REPORT INFORMATION
  Report Type: Spontaneous
  Country: US (occurrence: US)
  Receive Date: 20190129
  Receipt Date: 20190212
  Transmission Date: 20190417
  Serious: No
  Sender: FDA-Public Use
  Company Number: US-PFIZER INC-2019040389

PATIENT
  Age: 76 Year
  Sex: Female
  Weight: 60.32 kg

DRUGS (1)
  1. IBRANCE [Suspect]
     Active Substance: PALBOCICLIB
     Indication: BREAST CANCER METASTATIC
     Dosage: 125 MG, CYCLIC (DAYS 1-21 Q28 DAYS)
     Route: 048
     Dates: start: 20190109

REACTIONS (6)
  - Fatigue [Unknown]
  - Product dose omission [Unknown]
  - Epistaxis [Unknown]
  - Asthenia [Unknown]
  - Cough [Unknown]
  - Full blood count decreased [Unknown]
